FAERS Safety Report 18120201 (Version 2)
Quarter: 2020Q3

REPORT INFORMATION
  Report Type: Spontaneous
  Country: ES (occurrence: ES)
  Receive Date: 20200806
  Receipt Date: 20200813
  Transmission Date: 20201103
  Serious: Yes (Hospitalization, Other)
  Sender: FDA-Public Use
  Company Number: ES-BAYER-2020-150757

PATIENT
  Age: 37 Year
  Sex: Female

DRUGS (2)
  1. MIRENA [Suspect]
     Active Substance: LEVONORGESTREL
     Indication: METRORRHAGIA
     Dosage: UNK
     Route: 015
     Dates: start: 201503, end: 201605
  2. ESSURE [Suspect]
     Active Substance: DEVICE
     Indication: CONTRACEPTION
     Dosage: UNK
     Dates: start: 20091030, end: 20180220

REACTIONS (19)
  - Device breakage [Unknown]
  - Swelling [Unknown]
  - Device use issue [Recovered/Resolved]
  - Vaginal haemorrhage [Recovered/Resolved]
  - Dermatitis allergic [Unknown]
  - Genital haemorrhage [Recovered/Resolved]
  - Off label use of device [Recovered/Resolved]
  - Pain [Unknown]
  - Gastrointestinal disorder [Unknown]
  - Complication of device removal [Not Recovered/Not Resolved]
  - Embedded device [Not Recovered/Not Resolved]
  - Device expulsion [Recovered/Resolved]
  - Device dislocation [Unknown]
  - Helicobacter infection [Unknown]
  - Menstruation irregular [Unknown]
  - Migraine [Unknown]
  - Osteoporosis [Unknown]
  - Pelvic pain [Unknown]
  - Lymphangioleiomyomatosis [Not Recovered/Not Resolved]

NARRATIVE: CASE EVENT DATE: 20120404
